FAERS Safety Report 11430830 (Version 1)
Quarter: 2015Q3

REPORT INFORMATION
  Report Type: Spontaneous
  Country: US (occurrence: US)
  Receive Date: 20150828
  Receipt Date: 20150828
  Transmission Date: 20151125
  Serious: No
  Sender: FDA-Public Use
  Company Number: PHEH2014US017783

PATIENT
  Age: 54 Year
  Sex: Female

DRUGS (3)
  1. VIVELLE DOT [Suspect]
     Active Substance: ESTRADIOL
     Indication: HOT FLUSH
     Dosage: 0.25 MG, UNK
     Route: 065
     Dates: start: 2013, end: 2014
  2. VIVELLE DOT [Suspect]
     Active Substance: ESTRADIOL
     Indication: NIGHT SWEATS
  3. VIVELLE DOT [Suspect]
     Active Substance: ESTRADIOL
     Indication: VAGINAL HAEMORRHAGE

REACTIONS (1)
  - Drug ineffective [Unknown]
